FAERS Safety Report 8510670-4 (Version None)
Quarter: 2012Q3

REPORT INFORMATION
  Report Type: 
  Country: None (occurrence: None)
  Receive Date: 20120709
  Receipt Date: 20120709
  Transmission Date: 20120928
  Serious: Yes (Other)
  Sender: FDA-Public Use
  Company Number: None

PATIENT
  Sex: Male

DRUGS (4)
  1. SUCRALFATE [Concomitant]
  2. OMEPRAZOLE [Concomitant]
  3. EXJADE [Concomitant]
  4. JAKAFI [Suspect]
     Dosage: 5 MG EOD PO
     Route: 048
     Dates: start: 20120403

REACTIONS (2)
  - THROMBOCYTOPENIA [None]
  - DRUG INEFFECTIVE [None]
